FAERS Safety Report 6681266-4 (Version None)
Quarter: 2010Q2

REPORT INFORMATION
  Report Type: 
  Country: None (occurrence: None)
  Receive Date: 20100414
  Receipt Date: 20100409
  Transmission Date: 20101027
  Serious: Yes (Hospitalization, Other)
  Sender: FDA-Public Use
  Company Number: SK-ROCHE-696579

PATIENT
  Sex: Female

DRUGS (7)
  1. AVASTIN [Suspect]
     Route: 065
     Dates: start: 20071106, end: 20100218
  2. ANASTROZOLE [Concomitant]
  3. TAXOL [Concomitant]
     Dates: end: 20080610
  4. CONCOR [Concomitant]
  5. PREDUCTAL [Concomitant]
  6. LACIPIL [Concomitant]
  7. PRESTARIUM [Concomitant]

REACTIONS (3)
  - LABILE BLOOD PRESSURE [None]
  - NEPHROPATHY [None]
  - NEPHROTIC SYNDROME [None]
